FAERS Safety Report 7209748-7 (Version None)
Quarter: 2011Q1

REPORT INFORMATION
  Report Type: 
  Country: None (occurrence: None)
  Receive Date: 20110104
  Receipt Date: 20101221
  Transmission Date: 20110831
  Serious: Yes (Other)
  Sender: FDA-Public Use
  Company Number: GB-JNJFOC-20090701635

PATIENT
  Sex: Male

DRUGS (2)
  1. PARACETAMOL [Suspect]
     Indication: ILL-DEFINED DISORDER
     Dosage: MATERNAL OVERDOSE
     Route: 065
  2. PARACETAMOL [Suspect]
     Route: 065

REACTIONS (1)
  - HYPOSPADIAS [None]
